FAERS Safety Report 10347556 (Version 1)
Quarter: 2014Q3

REPORT INFORMATION
  Report Type: Spontaneous
  Country: MX (occurrence: MX)
  Receive Date: 20140729
  Receipt Date: 20140729
  Transmission Date: 20150326
  Serious: Yes (Other)
  Sender: FDA-Public Use
  Company Number: MX-JNJFOC-20140717562

PATIENT
  Age: 46 Year
  Sex: Female
  Weight: 60 kg

DRUGS (8)
  1. HYDROCORTISONE. [Concomitant]
     Active Substance: HYDROCORTISONE
     Indication: PREMEDICATION
     Route: 065
  2. FOLIC ACID. [Concomitant]
     Active Substance: FOLIC ACID
     Route: 065
  3. REMICADE [Suspect]
     Active Substance: INFLIXIMAB
     Indication: RHEUMATOID ARTHRITIS
     Route: 042
     Dates: start: 20140723
  4. CHLOROQUINE [Concomitant]
     Active Substance: CHLOROQUINE\CHLOROQUINE PHOSPHATE
     Route: 065
  5. REMICADE [Suspect]
     Active Substance: INFLIXIMAB
     Indication: RHEUMATOID ARTHRITIS
     Route: 042
     Dates: start: 20100827
  6. METHOTREXATE [Concomitant]
     Active Substance: METHOTREXATE
     Route: 048
  7. DICLOFENAC [Concomitant]
     Active Substance: DICLOFENAC
     Route: 065
  8. DIPHENHYDRAMINE [Concomitant]
     Active Substance: DIPHENHYDRAMINE
     Indication: PREMEDICATION
     Route: 065

REACTIONS (6)
  - Infusion related reaction [Not Recovered/Not Resolved]
  - Cough [Recovered/Resolved]
  - Rash generalised [Not Recovered/Not Resolved]
  - Respiratory failure [Recovered/Resolved]
  - Adverse event [Unknown]
  - Urticaria [Not Recovered/Not Resolved]

NARRATIVE: CASE EVENT DATE: 20140723
